FAERS Safety Report 18446206 (Version 2)
Quarter: 2020Q4

REPORT INFORMATION
  Report Type: Spontaneous
  Country: US (occurrence: US)
  Receive Date: 20201030
  Receipt Date: 20201116
  Transmission Date: 20210114
  Serious: Yes (Other)
  Sender: FDA-Public Use
  Company Number: US-BIOGEN-2020BI00939539

PATIENT
  Sex: Female

DRUGS (2)
  1. TECFIDERA [Suspect]
     Active Substance: DIMETHYL FUMARATE
     Dosage: MAINTENANCE DOSE
     Route: 048
     Dates: start: 20191212, end: 20200907
  2. TECFIDERA [Suspect]
     Active Substance: DIMETHYL FUMARATE
     Indication: MULTIPLE SCLEROSIS
     Dosage: STARTING DOSE
     Route: 048
     Dates: start: 20191205, end: 20191211

REACTIONS (10)
  - Gastric disorder [Recovered/Resolved]
  - Weight decreased [Unknown]
  - Hyperhidrosis [Recovered/Resolved]
  - Alopecia [Recovered/Resolved]
  - Increased tendency to bruise [Recovered/Resolved]
  - Nausea [Recovered/Resolved]
  - Hepatitis C [Not Recovered/Not Resolved]
  - Memory impairment [Unknown]
  - Constipation [Recovered/Resolved]
  - Urticaria [Recovered/Resolved]
